FAERS Safety Report 13862088 (Version 1)
Quarter: 2017Q3

REPORT INFORMATION
  Report Type: Spontaneous
  Country: US (occurrence: US)
  Receive Date: 20170812
  Receipt Date: 20170812
  Transmission Date: 20171127
  Serious: No
  Sender: FDA-Public Use
  Company Number: PHEH2017US025486

PATIENT

DRUGS (1)
  1. GLEEVEC [Suspect]
     Active Substance: IMATINIB MESYLATE
     Indication: SYSTEMIC MASTOCYTOSIS
     Route: 065

REACTIONS (1)
  - Periorbital oedema [Not Recovered/Not Resolved]
